FAERS Safety Report 5016500-X (Version None)
Quarter: 2006Q2

REPORT INFORMATION
  Report Type: 
  Country: None (occurrence: None)
  Receive Date: 20060602
  Receipt Date: 20060523
  Transmission Date: 20061013
  Serious: Yes (Other)
  Sender: FDA-Public Use
  Company Number: CA-JNJFOC-20060505050

PATIENT
  Sex: Female
  Weight: 70.76 kg

DRUGS (12)
  1. REMICADE [Suspect]
     Indication: CROHN'S DISEASE
     Route: 042
  2. PRENATAL VITAMINS [Concomitant]
     Route: 048
     Dates: start: 20050101
  3. PRENATAL VITAMINS [Concomitant]
     Route: 048
     Dates: start: 20050101
  4. PRENATAL VITAMINS [Concomitant]
     Route: 048
     Dates: start: 20050101
  5. PRENATAL VITAMINS [Concomitant]
     Route: 048
     Dates: start: 20050101
  6. PRENATAL VITAMINS [Concomitant]
     Route: 048
     Dates: start: 20050101
  7. PRENATAL VITAMINS [Concomitant]
     Route: 048
     Dates: start: 20050101
  8. PRENATAL VITAMINS [Concomitant]
     Indication: GENERAL PHYSICAL CONDITION
     Route: 048
     Dates: start: 20050101
  9. PRENATAL VITAMINS [Concomitant]
     Indication: PREGNANCY
     Route: 048
     Dates: start: 20050101
  10. TYLENOL (GELTAB) [Concomitant]
     Indication: MIGRAINE
     Route: 048
  11. TYLENOL (GELTAB) [Concomitant]
     Indication: HEADACHE
     Route: 048
  12. AZATHIPRINE [Concomitant]
     Indication: CROHN'S DISEASE
     Dosage: 3 TABLETS (5 MG EACH) ONCE A DAY
     Route: 048

REACTIONS (2)
  - DRUG EXPOSURE DURING PREGNANCY [None]
  - GESTATIONAL DIABETES [None]
